FAERS Safety Report 8602646-3 (Version None)
Quarter: 2012Q3

REPORT INFORMATION
  Report Type: 
  Country: None (occurrence: None)
  Receive Date: 20120817
  Receipt Date: 20120112
  Transmission Date: 20120928
  Serious: Yes (Other)
  Sender: FDA-Public Use
  Company Number: US-ROCHE-1099254

PATIENT
  Age: 57 Year
  Sex: Male

DRUGS (4)
  1. HEPARIN [Concomitant]
     Dosage: 10000 UNITS
     Route: 040
  2. NITROGLYCERIN [Concomitant]
  3. ACTIVASE [Suspect]
     Indication: ACUTE MYOCARDIAL INFARCTION
     Route: 065
  4. LOPRESSOR [Concomitant]
     Route: 042

REACTIONS (1)
  - PAIN [None]
